FAERS Safety Report 6025544-0 (Version None)
Quarter: 2008Q4

REPORT INFORMATION
  Report Type: 
  Country: None (occurrence: None)
  Receive Date: 20081224
  Receipt Date: 20081204
  Transmission Date: 20090506
  Serious: Yes (Death, Hospitalization)
  Sender: FDA-Public Use
  Company Number: 2008US003324

PATIENT
  Age: 49 Year
  Sex: Female

DRUGS (3)
  1. PROGRAF [Suspect]
     Indication: RENAL TRANSPLANT
     Dosage: 2 MG, UID/QD, ORAL
     Route: 048
  2. METHYLPREDNISOLONE 16MG TAB [Concomitant]
  3. MYCOPHENOLATE MOFETIL [Concomitant]

REACTIONS (8)
  - ASCITES [None]
  - CARDIAC TAMPONADE [None]
  - CULTURE POSITIVE [None]
  - ERYTHEMA NODOSUM [None]
  - HEPATIC CYST [None]
  - HISTOPLASMOSIS DISSEMINATED [None]
  - PERICARDIAL EFFUSION [None]
  - PYREXIA [None]
